FAERS Safety Report 4614335-0 (Version None)
Quarter: 2005Q1

REPORT INFORMATION
  Report Type: 
  Country: None (occurrence: None)
  Receive Date: 20050315
  Receipt Date: 20050224
  Transmission Date: 20050727
  Serious: Yes (Death, Hospitalization, Other)
  Sender: FDA-Public Use
  Company Number: US_0501109844

PATIENT
  Age: 57 Year
  Sex: Female
  Weight: 68 kg

DRUGS (1)
  1. EVISTA [Suspect]
     Dosage: 60 MG DAY
     Dates: start: 19990628, end: 20011216

REACTIONS (7)
  - ANAEMIA [None]
  - ENDOMETRIAL CANCER METASTATIC [None]
  - GENERAL PHYSICAL HEALTH DETERIORATION [None]
  - METASTASES TO LIVER [None]
  - NEUROENDOCRINE CARCINOMA [None]
  - POST PROCEDURAL HAEMORRHAGE [None]
  - SARCOMA [None]
